FAERS Safety Report 7080625-8 (Version None)
Quarter: 2010Q4

REPORT INFORMATION
  Report Type: 
  Country: None (occurrence: None)
  Receive Date: 20101103
  Receipt Date: 20101028
  Transmission Date: 20110411
  Serious: Yes (Death, Hospitalization)
  Sender: FDA-Public Use
  Company Number: DE-BRISTOL-MYERS SQUIBB COMPANY-15217243

PATIENT
  Age: 74 Year
  Sex: Female
  Weight: 86 kg

DRUGS (3)
  1. CISPLATIN [Suspect]
     Indication: NON-SMALL CELL LUNG CANCER
     Dosage: WITHDRAWN FROM STUDY ON 21JUN10 MOST RECENT: 08-JUN-2010 (DURN: 22 DAYS)
     Route: 042
     Dates: start: 20100518
  2. GEMCITABINE [Suspect]
     Indication: NON-SMALL CELL LUNG CANCER
     Dosage: WITHDRAWN FROM STUDY ON 21JUN10 MOST RECENT: 08-JUN-2010 (DURN: 22 DAYS)
     Route: 042
     Dates: start: 20100518
  3. NECITUMUMAB [Suspect]
     Indication: NON-SMALL CELL LUNG CANCER
     Dosage: WITHDRAWN FROM STUDY ON 21JUN2010 MOST RECENT: 08-JUN-2010 (DURN: 22 DAYS)
     Route: 042
     Dates: start: 20100518

REACTIONS (1)
  - PNEUMONIA [None]
